FAERS Safety Report 24013660 (Version 1)
Quarter: 2024Q2

REPORT INFORMATION
  Report Type: Spontaneous
  Country: ES (occurrence: ES)
  Receive Date: 20240626
  Receipt Date: 20240626
  Transmission Date: 20240715
  Serious: Yes (Hospitalization)
  Sender: FDA-Public Use
  Company Number: None

PATIENT
  Age: 6 Year
  Sex: Female
  Weight: 23 kg

DRUGS (4)
  1. IMATINIB [Suspect]
     Active Substance: IMATINIB
     Indication: Acute leukaemia
     Dosage: 300 MG, QD
     Route: 048
     Dates: start: 20240415, end: 20240605
  2. AMPHOTERICIN B [Suspect]
     Active Substance: AMPHOTERICIN B
     Indication: Antifungal prophylaxis
     Dosage: 57 MG (COMBINO PHARM 50 MG POLVO PARA SOLUCION PARA PERFUSION EFG)
     Route: 042
     Dates: start: 20240412, end: 20240531
  3. MERCAPTOPURINE [Suspect]
     Active Substance: MERCAPTOPURINE
     Indication: Acute leukaemia
     Dosage: 50 MG, QD (50 MG COMPRIMIDO)
     Route: 048
     Dates: start: 20240515, end: 20240605
  4. CYTARABINE [Suspect]
     Active Substance: CYTARABINE
     Indication: Acute leukaemia
     Dosage: 68 MG (100 MG INYECTABLE)
     Route: 042
     Dates: start: 20240517, end: 20240531

REACTIONS (3)
  - Hyperbilirubinaemia [Recovered/Resolved]
  - Coagulopathy [Recovered/Resolved]
  - Hepatocellular injury [Recovered/Resolved]

NARRATIVE: CASE EVENT DATE: 20240602
